FAERS Safety Report 9009000 (Version 1)
Quarter: 2013Q1

REPORT INFORMATION
  Report Type: Spontaneous
  Country: US (occurrence: US)
  Receive Date: 20130111
  Receipt Date: 20130111
  Transmission Date: 20140127
  Serious: Yes (Other)
  Sender: FDA-Public Use
  Company Number: US-BAYER-2013-002637

PATIENT
  Age: 55 Year
  Sex: Female
  Weight: 53.97 kg

DRUGS (4)
  1. BAYER GENUINE ASPIRIN ORIGINAL STRENGTH [Suspect]
     Indication: HEADACHE
     Dosage: 1 DF, UNK
     Route: 048
  2. BAYER GENUINE ASPIRIN ORIGINAL STRENGTH [Suspect]
     Indication: HEADACHE
     Dosage: EVERY ONE OR TWO HOURS DEPENDING ON THE PAIN.
  3. BAYER ASPIRIN REGIMEN REGULAR 325 MG STRENGTH [Concomitant]
  4. CARDIAC MEDICATION [Concomitant]

REACTIONS (2)
  - Gastric haemorrhage [None]
  - Incorrect dose administered [None]
